FAERS Safety Report 7090135-X (Version None)
Quarter: 2010Q4

REPORT INFORMATION
  Report Type: 
  Country: None (occurrence: None)
  Receive Date: 20101105
  Receipt Date: 20101105
  Transmission Date: 20110411
  Serious: Yes (Other)
  Sender: FDA-Public Use
  Company Number: None

PATIENT
  Sex: Female
  Weight: 95.709 kg

DRUGS (2)
  1. LEVAQUIN [Suspect]
     Indication: BRONCHOPNEUMONIA
     Dosage: 1 500 MG TAB 1 DAILY X8 P.O.
     Route: 048
     Dates: start: 20101006
  2. LEVAQUIN [Suspect]
     Indication: BRONCHOPNEUMONIA
     Dosage: 1 500 MG TAB 1 DAILY X8 P.O.
     Route: 048
     Dates: start: 20101007

REACTIONS (2)
  - ARTHRALGIA [None]
  - PAIN IN EXTREMITY [None]
